FAERS Safety Report 5237367-0 (Version None)
Quarter: 2007Q1

REPORT INFORMATION
  Report Type: 
  Country: None (occurrence: None)
  Receive Date: 20070213
  Receipt Date: 20070130
  Transmission Date: 20070707
  Serious: Yes (Other)
  Sender: FDA-Public Use
  Company Number: BR-SHR-BR-2006-010449

PATIENT
  Age: 61 Year
  Sex: Female

DRUGS (7)
  1. GM-CSF (9874) [Suspect]
     Indication: CROHN'S DISEASE
     Dosage: 6 A?G/KG, 1X/DAY
     Route: 058
     Dates: start: 20060417, end: 20060421
  2. OMEPRAZOLE [Concomitant]
     Dates: start: 20050301
  3. CALCIUM CARBONATE [Concomitant]
     Indication: OSTEOPOROSIS PROPHYLAXIS
     Dates: start: 20030101
  4. GLUCOSAMINE [Concomitant]
     Indication: ARTHRALGIA
     Dates: start: 20030101
  5. VITAMIN D3 [Concomitant]
     Indication: ARTHRALGIA
     Dates: start: 20030101
  6. AMITRIPTYLINE HCL [Concomitant]
     Dates: start: 20030101
  7. PARACETAMOL [Concomitant]
     Indication: ARTHRALGIA
     Dates: start: 20030101

REACTIONS (1)
  - CHEST PAIN [None]
